FAERS Safety Report 6689071-X (Version None)
Quarter: 2010Q2

REPORT INFORMATION
  Report Type: 
  Country: None (occurrence: None)
  Receive Date: 20100420
  Receipt Date: 20100411
  Transmission Date: 20101027
  Serious: Yes (Hospitalization)
  Sender: FDA-Public Use
  Company Number: US-AMGEN-QUU404784

PATIENT
  Sex: Female

DRUGS (2)
  1. ENBREL [Suspect]
     Indication: PSORIATIC ARTHROPATHY
     Route: 058
     Dates: start: 20090515
  2. METHOTREXATE [Concomitant]

REACTIONS (3)
  - ANGINA PECTORIS [None]
  - LARGE INTESTINAL ULCER [None]
  - TACHYCARDIA [None]
